FAERS Safety Report 8356311-0 (Version None)
Quarter: 2012Q2

REPORT INFORMATION
  Report Type: 
  Country: None (occurrence: None)
  Receive Date: 20120514
  Receipt Date: 20120508
  Transmission Date: 20120825
  Serious: Yes (Hospitalization, Other)
  Sender: FDA-Public Use
  Company Number: US-SANOFI-AVENTIS-2012SA032699

PATIENT
  Age: 65 Year
  Sex: Male
  Weight: 85 kg

DRUGS (8)
  1. PLAVIX [Suspect]
     Indication: STENT PLACEMENT
     Route: 048
     Dates: end: 20071203
  2. ALL OTHER THERAPEUTIC PRODUCTS [Concomitant]
  3. FUROSEMIDE [Concomitant]
  4. ASPIRIN [Suspect]
     Indication: STENT PLACEMENT
     Dates: end: 20071203
  5. BENICAR [Concomitant]
  6. LISINOPRIL [Concomitant]
  7. METOPROLOL TARTRATE [Concomitant]
  8. KLOR-CON [Concomitant]

REACTIONS (11)
  - VISUAL IMPAIRMENT [None]
  - HEADACHE [None]
  - MOBILITY DECREASED [None]
  - FEEDING DISORDER [None]
  - GAIT DISTURBANCE [None]
  - PAIN IN EXTREMITY [None]
  - UNEVALUABLE EVENT [None]
  - EYE PAIN [None]
  - THROMBOSIS [None]
  - EYE MOVEMENT DISORDER [None]
  - CEREBRAL HAEMORRHAGE [None]
